FAERS Safety Report 17904339 (Version 1)
Quarter: 2020Q2

REPORT INFORMATION
  Report Type: Report from Study
  Country: KR (occurrence: KR)
  Receive Date: 20200617
  Receipt Date: 20200617
  Transmission Date: 20200714
  Serious: Yes (Death, Hospitalization)
  Sender: FDA-Public Use
  Company Number: KR-ACTELION-A-CH2020-206017

PATIENT
  Age: 53 Year
  Sex: Female

DRUGS (1)
  1. BOSENTAN. [Suspect]
     Active Substance: BOSENTAN
     Indication: PULMONARY ARTERIAL HYPERTENSION
     Dosage: 2 DF, BID
     Route: 048

REACTIONS (8)
  - Pain [Unknown]
  - Dyspnoea [Unknown]
  - Abscess drainage [Unknown]
  - Oxygen saturation decreased [Fatal]
  - Cyanosis [Fatal]
  - Brain abscess [Recovering/Resolving]
  - Right-to-left cardiac shunt [Fatal]
  - Condition aggravated [Fatal]

NARRATIVE: CASE EVENT DATE: 20200331
